FAERS Safety Report 7997563-6 (Version None)
Quarter: 2011Q4

REPORT INFORMATION
  Report Type: 
  Country: None (occurrence: None)
  Receive Date: 20111221
  Receipt Date: 20111215
  Transmission Date: 20120403
  Serious: Yes (Other)
  Sender: FDA-Public Use
  Company Number: US-RB-031866-11

PATIENT
  Age: 36 Year
  Sex: Male

DRUGS (2)
  1. MUCINEX FAST MAX ADULT COLD + SINUS [Suspect]
     Dosage: 12.13.11 2X (AFTER NOON AND NIGHT)
     Route: 048
     Dates: start: 20111213
  2. MUCINEX FAST MAX ADULT COLD + SINUS [Suspect]
     Indication: PRODUCT USED FOR UNKNOWN INDICATION
     Dosage: 12.14.11 20ML EACH TIME (3 TOTAL DOSES)
     Route: 048
     Dates: start: 20111214

REACTIONS (1)
  - EPISTAXIS [None]
